FAERS Safety Report 5287639-9 (Version None)
Quarter: 2007Q1

REPORT INFORMATION
  Report Type: 
  Country: None (occurrence: None)
  Receive Date: 20070105
  Receipt Date: 20060519
  Transmission Date: 20070707
  Serious: Yes (Other)
  Sender: FDA-Public Use
  Company Number: 20060109

PATIENT
  Age: 68 Year
  Sex: Female

DRUGS (1)
  1. VENOFER [Suspect]
     Dosage: 500 MG/1000 ML NS INTRAVENOUS DRIP
     Route: 041
     Dates: start: 20060414, end: 20060504

REACTIONS (4)
  - BURNING SENSATION [None]
  - HYPOTENSION [None]
  - LOSS OF CONSCIOUSNESS [None]
  - SYNCOPE [None]
